FAERS Safety Report 9287762 (Version 2)
Quarter: 2013Q2

REPORT INFORMATION
  Report Type: Spontaneous
  Country: US (occurrence: US)
  Receive Date: 20130514
  Receipt Date: 20130531
  Transmission Date: 20140414
  Serious: No
  Sender: FDA-Public Use
  Company Number: US-PFIZER INC-2013143137

PATIENT
  Age: 43 Year
  Sex: Male

DRUGS (2)
  1. ACCURETIC [Suspect]
     Indication: HYPERTENSION
     Dosage: UNK
  2. DIOVAN HCT [Suspect]
     Dosage: UNK

REACTIONS (2)
  - Drug hypersensitivity [Unknown]
  - Cough [Unknown]
